FAERS Safety Report 18080130 (Version 3)
Quarter: 2020Q3

REPORT INFORMATION
  Report Type: Report from Study
  Country: CA (occurrence: CA)
  Receive Date: 20200728
  Receipt Date: 20200828
  Transmission Date: 20201103
  Serious: Yes (Other)
  Sender: FDA-Public Use
  Company Number: CA-REGENERON PHARMACEUTICALS, INC.-2020-52571

PATIENT

DRUGS (1)
  1. EYLEA [Suspect]
     Active Substance: AFLIBERCEPT
     Indication: PRODUCT USED FOR UNKNOWN INDICATION
     Dosage: TOTAL DOSE OF EYLEA PRIOR TO THE EVENT IS UNK. DATE OF LAST DOSE PRIOR TO THE EVENT IS UNK.
     Route: 031

REACTIONS (1)
  - Eye injury [Not Recovered/Not Resolved]
